FAERS Safety Report 21324167 (Version 2)
Quarter: 2022Q3

REPORT INFORMATION
  Report Type: Spontaneous
  Country: DE (occurrence: DE)
  Receive Date: 20220912
  Receipt Date: 20220919
  Transmission Date: 20221026
  Serious: Yes (Other)
  Sender: FDA-Public Use
  Company Number: DE-002147023-NVSC2022DE204196

PATIENT

DRUGS (1)
  1. VOLTAREN [Suspect]
     Active Substance: DICLOFENAC SODIUM
     Indication: Spinal disorder
     Dosage: UNK UNK, PRN (AS NEEDED)
     Route: 065

REACTIONS (2)
  - Hypertensive crisis [Unknown]
  - Hypersomnia [Unknown]

NARRATIVE: CASE EVENT DATE: 20220905
